FAERS Safety Report 25869253 (Version 1)
Quarter: 2025Q4

REPORT INFORMATION
  Report Type: Spontaneous
  Country: RU (occurrence: RU)
  Receive Date: 20251001
  Receipt Date: 20251001
  Transmission Date: 20260118
  Serious: Yes (Other)
  Sender: ROCHE
  Company Number: RU-ROCHE-10000394152

PATIENT
  Age: 43 Year
  Sex: Male

DRUGS (8)
  1. VEMURAFENIB [Suspect]
     Active Substance: VEMURAFENIB
     Indication: Malignant melanoma
     Route: 048
     Dates: start: 2023, end: 202501
  2. VEMURAFENIB [Suspect]
     Active Substance: VEMURAFENIB
     Route: 065
     Dates: start: 202110
  3. VEMURAFENIB [Suspect]
     Active Substance: VEMURAFENIB
     Route: 065
     Dates: start: 201905
  4. COBIMETINIB [Suspect]
     Active Substance: COBIMETINIB
     Indication: Malignant melanoma
     Dosage: DAYS 1-12
     Route: 065
     Dates: end: 202501
  5. ATEZOLIZUMAB [Suspect]
     Active Substance: ATEZOLIZUMAB
     Indication: Malignant melanoma
     Dosage: 17 CYCLES WERE COMPLETED. CYCLE 18 WAS INITIATED
     Route: 065
     Dates: end: 202501
  6. PEMBROLIZUMAB [Concomitant]
     Active Substance: PEMBROLIZUMAB
     Dosage: 5 CYCLES
     Dates: start: 2021
  7. NIVOLUMAB [Concomitant]
     Active Substance: NIVOLUMAB
     Dosage: 4 CYCLES WITH IPILIMUMAB??AND 2 CYCLES
     Dates: start: 202207
  8. NELVUTAMIG [Concomitant]
     Active Substance: NELVUTAMIG
     Dosage: 4 CYCLES
     Dates: start: 202207

REACTIONS (6)
  - Metastases to central nervous system [Unknown]
  - Adrenal gland cancer metastatic [Unknown]
  - Metastases to liver [Unknown]
  - Metastases to abdominal cavity [Unknown]
  - Metastases to lymph nodes [Unknown]
  - Metastases to lung [Unknown]

NARRATIVE: CASE EVENT DATE: 20210901
